FAERS Safety Report 10032417 (Version 1)
Quarter: 2014Q1

REPORT INFORMATION
  Report Type: Spontaneous
  Country: FR (occurrence: None)
  Receive Date: 20140320
  Receipt Date: 20140320
  Transmission Date: 20141002
  Serious: Yes (Hospitalization)
  Sender: FDA-Public Use
  Company Number: VAL_03031_2014

PATIENT
  Age: 67 Year
  Sex: Female

DRUGS (8)
  1. ROCALTROL [Suspect]
     Indication: PROPHYLAXIS
     Route: 048
     Dates: end: 20130801
  2. CALCIDIA [Suspect]
     Indication: PROPHYLAXIS
     Route: 048
     Dates: end: 20130801
  3. ALTEISDUO [Suspect]
     Route: 048
     Dates: start: 20130801
  4. AVLOCARDYL /00030002/ [Concomitant]
  5. LESCOL [Concomitant]
  6. LEVOTHYROX [Concomitant]
  7. PIASCLEDINE /01305801/ [Concomitant]
  8. EFFERALGAN /00020001/ [Concomitant]

REACTIONS (10)
  - Drug interaction [None]
  - Hypercalcaemia of malignancy [None]
  - Hypokalaemia [None]
  - Meningioma [None]
  - Vertigo [None]
  - Tinnitus [None]
  - Dizziness [None]
  - Bradycardia [None]
  - Renal failure acute [None]
  - Ischaemia [None]
